FAERS Safety Report 9317161 (Version 1)
Quarter: 2013Q2

REPORT INFORMATION
  Report Type: Spontaneous
  Country: US (occurrence: None)
  Receive Date: 20130524
  Receipt Date: 20130524
  Transmission Date: 20140414
  Serious: Yes (Other)
  Sender: FDA-Public Use
  Company Number: JPI-P-032000

PATIENT
  Age: 40 Year
  Sex: Male

DRUGS (2)
  1. XYREM (500 MILLIGRAM/MILLILITERS, SOLUTION) (SODIUM OXYBATE) [Suspect]
     Indication: CATAPLEXY
     Dosage: 6 GM (3 GM,2 IN 1 D)
     Route: 048
     Dates: start: 20081118
  2. ANTIDEPRESSANT [Concomitant]

REACTIONS (6)
  - Bipolar I disorder [None]
  - Memory impairment [None]
  - Educational problem [None]
  - Suicidal ideation [None]
  - Truancy [None]
  - Withdrawal syndrome [None]
